FAERS Safety Report 10588498 (Version 1)
Quarter: 2014Q4

REPORT INFORMATION
  Report Type: Report from Study
  Country: US (occurrence: US)
  Receive Date: 20141117
  Receipt Date: 20141117
  Transmission Date: 20150529
  Serious: Yes (Hospitalization, Other)
  Sender: FDA-Public Use
  Company Number: US-TAKEDA-2014MPI002987

PATIENT
  Age: 16 Year
  Sex: Male
  Weight: 45.2 kg

DRUGS (10)
  1. DAUNORUBICIN HYDROCHLORIDE. [Suspect]
     Active Substance: DAUNORUBICIN HYDROCHLORIDE
     Indication: ACUTE MYELOID LEUKAEMIA
     Dosage: 50 MG/M2/DOSE OR 1.7 MG/KG/DOSE (IF BSA { 0.6 M2) OVER 1-15 MINUTES ON DAYS 1, 3 AND 5
     Route: 042
     Dates: start: 20140905, end: 20140910
  2. CYTARABINE. [Suspect]
     Active Substance: CYTARABINE
     Dosage: 100 MG/M2/DOSE OR 3.3 MG/KG/DOSE (IF BSA { 0.6 M2) BID OVER 15-30 MINUTES ON DAYS 1-10
     Route: 042
     Dates: start: 20140905, end: 20140915
  3. ETOPOSIDE. [Suspect]
     Active Substance: ETOPOSIDE
     Indication: ACUTE MYELOID LEUKAEMIA
     Dosage: 100 MG/M2/DOSE OR 3.3 MG/KG/DOSE (IF BSA { 0.6 M2) OVER 60-120 MINUTES ON DAYS 1-5
     Route: 042
     Dates: start: 20140905, end: 20140910
  4. VELCADE [Suspect]
     Active Substance: BORTEZOMIB
     Indication: ACUTE MYELOID LEUKAEMIA
     Dosage: 1.3 MG/M2, OVER 3-5 SECONDS ON DAYS 1, 4, AND 8
     Route: 042
     Dates: start: 20140905
  5. CEFEPIME [Concomitant]
     Active Substance: CEFEPIME\CEFEPIME HYDROCHLORIDE
  6. CYTARABINE. [Suspect]
     Active Substance: CYTARABINE
     Indication: ACUTE MYELOID LEUKAEMIA
     Dosage: 20-70 MG (AGE BASED DOSING) ON DAY 1(CNS POSITIVE PATIENTS:TWICE WEEKLY TO A MAXIMUM OF 6 DOSES)
     Route: 037
     Dates: start: 20140905, end: 20140905
  7. BACTRIM [Concomitant]
     Active Substance: SULFAMETHOXAZOLE\TRIMETHOPRIM
  8. AMPHOTERICIN B. [Concomitant]
     Active Substance: AMPHOTERICIN B
  9. GENTAMICIN. [Concomitant]
     Active Substance: GENTAMICIN
  10. METRONIDAZOLE. [Concomitant]
     Active Substance: METRONIDAZOLE

REACTIONS (3)
  - Bone marrow failure [Not Recovered/Not Resolved]
  - Hyperbilirubinaemia [Recovered/Resolved]
  - Colitis [Recovered/Resolved]

NARRATIVE: CASE EVENT DATE: 20140917
